FAERS Safety Report 6184736-0 (Version None)
Quarter: 2009Q2

REPORT INFORMATION
  Report Type: 
  Country: None (occurrence: None)
  Receive Date: 20090508
  Receipt Date: 20090427
  Transmission Date: 20091009
  Serious: Yes (Other)
  Sender: FDA-Public Use
  Company Number: ES-GENENTECH-282274

PATIENT
  Age: 39 Year
  Sex: Female

DRUGS (2)
  1. HERCEPTIN [Suspect]
     Indication: BREAST CANCER
     Dosage: 6 MG, UNK
     Route: 042
     Dates: start: 20070528, end: 20080314
  2. TAMOXIFEN CITRATE [Concomitant]
     Indication: DRUG USE FOR UNKNOWN INDICATION
     Dosage: UNK
     Dates: start: 20070528

REACTIONS (3)
  - ARTHRALGIA [None]
  - NEUROPATHY PERIPHERAL [None]
  - TREMOR [None]
